FAERS Safety Report 6199900-4 (Version None)
Quarter: 2009Q2

REPORT INFORMATION
  Report Type: 
  Country: None (occurrence: None)
  Receive Date: 20090522
  Receipt Date: 20090515
  Transmission Date: 20091009
  Serious: Yes (Death)
  Sender: FDA-Public Use
  Company Number: US-PFIZER INC-2009214521

PATIENT
  Sex: Male
  Weight: 104 kg

DRUGS (3)
  1. LIPITOR [Suspect]
     Indication: CARDIAC DISORDER
     Route: 048
  2. LIPITOR [Suspect]
     Indication: VASCULAR GRAFT
  3. LIPITOR [Suspect]
     Indication: CEREBROVASCULAR ACCIDENT

REACTIONS (1)
  - DEATH [None]
